FAERS Safety Report 5229283-5 (Version None)
Quarter: 2007Q1

REPORT INFORMATION
  Report Type: 
  Country: None (occurrence: None)
  Receive Date: 20061201
  Receipt Date: 20060807
  Transmission Date: 20070707
  Serious: No
  Sender: FDA-Public Use
  Company Number: US200608001855

PATIENT
  Age: 61 Year
  Sex: Female

DRUGS (6)
  1. CYMBALTA [Suspect]
     Indication: DEPRESSION
     Dosage: 30 MG
     Dates: start: 20060503, end: 20060506
  2. CYMBALTA [Suspect]
  3. XANAX /USA/ (ALPRAZOLAM) [Concomitant]
  4. SOMA [Concomitant]
  5. PERCOCET [Concomitant]
  6. SYNTHROID [Concomitant]

REACTIONS (2)
  - FEELING ABNORMAL [None]
  - THINKING ABNORMAL [None]
